FAERS Safety Report 5875574-4 (Version None)
Quarter: 2008Q3

REPORT INFORMATION
  Report Type: 
  Country: None (occurrence: None)
  Receive Date: 20080909
  Receipt Date: 20080827
  Transmission Date: 20090109
  Serious: Yes (Other)
  Sender: FDA-Public Use
  Company Number: GB-ELI_LILLY_AND_COMPANY-GB200807000634

PATIENT
  Age: 11 Year
  Sex: Female
  Weight: 42.15 kg

DRUGS (3)
  1. HUMULIN 70/30 [Suspect]
     Indication: TYPE 1 DIABETES MELLITUS
     Dosage: 30 IU, DAILY (1/D)
     Route: 058
     Dates: start: 20080509, end: 20080627
  2. HUMALOG [Suspect]
     Indication: TYPE 1 DIABETES MELLITUS
     Dosage: 30 IU, DAILY (1/D)
     Route: 058
     Dates: start: 20080627
  3. NOVOLOG MIX 70/30 [Concomitant]
     Indication: TYPE 1 DIABETES MELLITUS
     Dosage: 19 IU, DAILY (1/D)
     Route: 058
     Dates: start: 20080206, end: 20080509

REACTIONS (4)
  - EMOTIONAL DISTRESS [None]
  - INJECTION SITE ERYTHEMA [None]
  - INJECTION SITE MASS [None]
  - INJECTION SITE PAIN [None]
